FAERS Safety Report 17207421 (Version 2)
Quarter: 2020Q1

REPORT INFORMATION
  Report Type: Report from Study
  Country: JP (occurrence: JP)
  Receive Date: 20191227
  Receipt Date: 20200109
  Transmission Date: 20200409
  Serious: Yes (Hospitalization)
  Sender: FDA-Public Use
  Company Number: JP-KYOWAKIRIN-2019AKK020606

PATIENT

DRUGS (8)
  1. BUROSUMAB [Suspect]
     Active Substance: BUROSUMAB
     Dosage: 1.0 MG/KG, 1X/4 WEEKS
     Route: 058
     Dates: start: 20170826, end: 20171014
  2. BUROSUMAB [Suspect]
     Active Substance: BUROSUMAB
     Indication: HEREDITARY HYPOPHOSPHATAEMIC RICKETS
     Dosage: 1.0 MG/KG, 1X/4 WEEKS
     Route: 058
     Dates: start: 20191015
  3. BUROSUMAB [Suspect]
     Active Substance: BUROSUMAB
     Dosage: 1.0 MG/KG, 1X/4 WEEKS
     Route: 058
     Dates: start: 20171118, end: 20171216
  4. BUROSUMAB [Suspect]
     Active Substance: BUROSUMAB
     Dosage: 1.0 MG/KG, 1X/4 WEEKS
     Route: 058
     Dates: start: 20160822, end: 20170724
  5. NATURE MADE D [Concomitant]
     Indication: VITAMIN D DEFICIENCY
     Dosage: 10 UG, QD
     Route: 048
     Dates: start: 20160312
  6. TAPROS [TAFLUPROST] [Concomitant]
     Indication: GLAUCOMA
     Dosage: 2 GTT, QD
     Route: 047
     Dates: start: 20161119
  7. BUROSUMAB [Suspect]
     Active Substance: BUROSUMAB
     Dosage: 1.0 MG/KG, 1X/4 WEEKS
     Route: 058
     Dates: start: 20180109, end: 20190105
  8. BUROSUMAB [Suspect]
     Active Substance: BUROSUMAB
     Dosage: 1.0 MG/KG, 1X/4 WEEKS
     Route: 058
     Dates: start: 20190202, end: 20190914

REACTIONS (1)
  - Colitis ischaemic [Recovered/Resolved]

NARRATIVE: CASE EVENT DATE: 20191224
